FAERS Safety Report 6626895-9 (Version None)
Quarter: 2010Q1

REPORT INFORMATION
  Report Type: 
  Country: None (occurrence: None)
  Receive Date: 20100311
  Receipt Date: 20100301
  Transmission Date: 20100710
  Serious: Yes (Hospitalization)
  Sender: FDA-Public Use
  Company Number: NL-SANOFI-AVENTIS-200910411GDDC

PATIENT
  Age: 84 Year
  Sex: Male
  Weight: 67 kg

DRUGS (23)
  1. BLINDED THERAPY [Suspect]
     Route: 048
     Dates: start: 20081219, end: 20081219
  2. DOCETAXEL [Suspect]
     Route: 042
     Dates: start: 20081219, end: 20081219
  3. PREDNISOLONE [Suspect]
     Route: 048
     Dates: start: 20080704, end: 20081230
  4. FOSAMAX [Concomitant]
  5. OMNIC [Concomitant]
  6. SUCRALFATE [Concomitant]
     Dosage: DOSE AS USED: UNK
  7. ACUZIDE [Concomitant]
     Dosage: DOSE AS USED: 20/12.5 MG
  8. ASCAL [Concomitant]
  9. DIFLUCAN [Concomitant]
  10. TAMSULOSIN HCL [Concomitant]
  11. SPIRIVA [Concomitant]
  12. ALENDRONIC ACID [Concomitant]
  13. LIDOCAINE [Concomitant]
  14. FLUTICASONE W/SALMETEROL [Concomitant]
  15. AMOXICILLIN SODIUM/CLAVULANATE POTASSIUM [Concomitant]
  16. LASILETTEN [Concomitant]
     Dosage: DOSE AS USED: UNK
     Dates: start: 20080624
  17. CHLORHEXIDINE GLUCONATE [Concomitant]
     Dosage: DOSE AS USED: UNK
     Dates: start: 20080815
  18. NYSTATINE ^LABAZ^ [Concomitant]
     Dosage: DOSE AS USED: UNK
     Dates: start: 20080822
  19. SIMVASTATIN [Concomitant]
  20. ANTICHOLINERGIC AGENTS [Concomitant]
  21. ZOLADEX [Concomitant]
  22. FRAGMIN [Concomitant]
     Dosage: DOSE:2500 UNIT(S)
  23. ALL OTHER THERAPEUTIC PRODUCTS [Concomitant]

REACTIONS (2)
  - ERYSIPELAS [None]
  - PROTEINURIA [None]
